FAERS Safety Report 8597750-2 (Version None)
Quarter: 2012Q3

REPORT INFORMATION
  Report Type: 
  Country: None (occurrence: None)
  Receive Date: 20120816
  Receipt Date: 20120808
  Transmission Date: 20120928
  Serious: Yes (Other)
  Sender: FDA-Public Use
  Company Number: PHHY2012CA062868

PATIENT
  Sex: Female

DRUGS (15)
  1. WARFARIN SODIUM [Concomitant]
  2. RAMIPRIL [Concomitant]
  3. FUROSEMIDE [Concomitant]
  4. CALCIUM [Concomitant]
  5. PENNSAID [Concomitant]
  6. ZOLEDRONOC ACID [Suspect]
     Indication: OSTEOPOROSIS
     Dosage: UNK
     Route: 042
     Dates: start: 20090601
  7. ZOLEDRONOC ACID [Suspect]
     Dosage: UNK
     Route: 042
     Dates: start: 20100622
  8. DIGOXIN [Concomitant]
  9. METOPROLOL TARTRATE [Concomitant]
  10. VITAMIN D [Concomitant]
  11. VITAMIN B-12 [Concomitant]
  12. ATORVASTATIN [Concomitant]
  13. ZOLEDRONOC ACID [Suspect]
     Dosage: UNK
     Route: 042
     Dates: start: 20110728
  14. VOLTAREN [Concomitant]
     Route: 061
  15. TYLENOL [Concomitant]
     Indication: ARTHRITIS

REACTIONS (7)
  - FALL [None]
  - GLOMERULAR FILTRATION RATE DECREASED [None]
  - HAEMOGLOBIN DECREASED [None]
  - BLOOD CREATININE INCREASED [None]
  - CONTUSION [None]
  - HAEMATOCRIT DECREASED [None]
  - RED BLOOD CELL COUNT DECREASED [None]
